FAERS Safety Report 25288407 (Version 2)
Quarter: 2025Q2

REPORT INFORMATION
  Report Type: Spontaneous
  Country: US (occurrence: None)
  Receive Date: 20250509
  Receipt Date: 20250613
  Transmission Date: 20250716
  Serious: No
  Sender: INCYTE
  Company Number: US-INCYTE CORPORATION-2025IN004722

PATIENT

DRUGS (1)
  1. JAKAFI [Suspect]
     Active Substance: RUXOLITINIB
     Indication: Myelofibrosis
     Dosage: 10 MILLIGRAM, BID

REACTIONS (7)
  - Pallor [Unknown]
  - Pain in extremity [Unknown]
  - Burning sensation [Unknown]
  - Feeling cold [Unknown]
  - Anaemia [Unknown]
  - Dyspnoea [Unknown]
  - Dizziness [Unknown]
